FAERS Safety Report 11071807 (Version 1)
Quarter: 2015Q2

REPORT INFORMATION
  Report Type: Spontaneous
  Country: US (occurrence: US)
  Receive Date: 20150428
  Receipt Date: 20150428
  Transmission Date: 20150821
  Serious: Yes (Other)
  Sender: FDA-Public Use
  Company Number: US-ASTELLAS-2015US013433

PATIENT
  Age: 29 Year
  Sex: Male

DRUGS (2)
  1. PROGRAF [Suspect]
     Active Substance: TACROLIMUS\TACROLIMUS ANHYDROUS
     Indication: HEART TRANSPLANT
     Dosage: 2 CAPSULES, TWICE DAILY
     Route: 048
     Dates: start: 20050630
  2. PROGRAF [Suspect]
     Active Substance: TACROLIMUS\TACROLIMUS ANHYDROUS
     Dosage: 6 CAPSULES, ONCE DAILY
     Route: 048
     Dates: start: 201504

REACTIONS (2)
  - Cardiac disorder [Unknown]
  - Therapy change [Unknown]

NARRATIVE: CASE EVENT DATE: 201504
